FAERS Safety Report 16594513 (Version 1)
Quarter: 2019Q3

REPORT INFORMATION
  Report Type: Report from Study
  Country: IT (occurrence: IT)
  Receive Date: 20190718
  Receipt Date: 20190718
  Transmission Date: 20191004
  Serious: Yes (Hospitalization, Other)
  Sender: FDA-Public Use
  Company Number: IT-BRISTOL-MYERS SQUIBB COMPANY-BMS-2019-066501

PATIENT
  Age: 96 Year
  Sex: Female

DRUGS (1)
  1. WARFARIN SODIUM. [Suspect]
     Active Substance: WARFARIN SODIUM
     Indication: PULMONARY EMBOLISM
     Dosage: 5 MILLIGRAM, PRN
     Route: 048
     Dates: start: 20160101, end: 20190101

REACTIONS (6)
  - Duodenitis [Recovered/Resolved]
  - Erosive duodenitis [Recovered/Resolved]
  - Oedema [Recovered/Resolved]
  - Gastritis erosive [Recovered/Resolved]
  - Haemoglobinaemia [Recovered/Resolved]
  - Rectal haemorrhage [Recovered/Resolved]

NARRATIVE: CASE EVENT DATE: 20190101
